FAERS Safety Report 10063723 (Version 1)
Quarter: 2014Q2

REPORT INFORMATION
  Report Type: Spontaneous
  Country: US (occurrence: US)
  Receive Date: 20140407
  Receipt Date: 20140407
  Transmission Date: 20141212
  Serious: No
  Sender: FDA-Public Use
  Company Number: US-009507513-1403USA013885

PATIENT
  Age: 54 Year
  Sex: Male

DRUGS (3)
  1. PEGINTRON [Suspect]
     Indication: HEPATITIS C
     Dosage: 0.5 ML, Q7 DAYS
     Route: 058
     Dates: start: 20140317
  2. RIBAVIRIN [Suspect]
     Indication: HEPATITIS C
     Dosage: REDIPEN, STRENGTH AS 200 MG,  3 PILLS/BID
     Route: 048
     Dates: start: 20140317
  3. SOVALDI [Concomitant]
     Dosage: 400 MG, QD

REACTIONS (1)
  - Sleep disorder [Unknown]
